FAERS Safety Report 7899953-9 (Version None)
Quarter: 2011Q4

REPORT INFORMATION
  Report Type: 
  Country: None (occurrence: None)
  Receive Date: 20111107
  Receipt Date: 20111018
  Transmission Date: 20120403
  Serious: No
  Sender: FDA-Public Use
  Company Number: US-AMGEN-USASP2011024734

PATIENT
  Age: 60 Year
  Sex: Female
  Weight: 68.027 kg

DRUGS (6)
  1. DIAZEPAM [Concomitant]
     Dosage: 20 MG, UNK
     Dates: start: 20050101
  2. ENBREL [Suspect]
     Indication: PSORIASIS
  3. PRILOSEC [Concomitant]
     Dosage: 20 MG, UNK
     Dates: start: 20000101
  4. ESTRATEST [Concomitant]
     Dosage: UNK
     Dates: start: 19900101
  5. ENBREL [Suspect]
     Indication: PSORIATIC ARTHROPATHY
     Dosage: 25 MG, QWK
     Route: 058
     Dates: start: 20050110, end: 20051215
  6. VITAMINS                           /00067501/ [Concomitant]
     Dosage: UNK
     Dates: start: 19900101

REACTIONS (12)
  - INJECTION SITE REACTION [None]
  - MIDDLE EAR PROSTHESIS INSERTION [None]
  - DECREASED IMMUNE RESPONSIVENESS [None]
  - STAPHYLOCOCCAL INFECTION [None]
  - EAR TUBE INSERTION [None]
  - UPPER RESPIRATORY TRACT INFECTION [None]
  - MASTOIDECTOMY [None]
  - EAR INFECTION [None]
  - HERPES ZOSTER [None]
  - SINUSITIS [None]
  - TYMPANOPLASTY [None]
  - SKIN GRAFT [None]
